FAERS Safety Report 8557082-5 (Version None)
Quarter: 2012Q3

REPORT INFORMATION
  Report Type: 
  Country: None (occurrence: None)
  Receive Date: 20120801
  Receipt Date: 20120724
  Transmission Date: 20120928
  Serious: Yes (Other)
  Sender: FDA-Public Use
  Company Number: US-VERTEX PHARMACEUTICALS INC.-AE-2012-010817

PATIENT
  Sex: Male

DRUGS (9)
  1. ATENOLOL [Concomitant]
     Dates: start: 20081008
  2. CITALOPRAM HYDROBROMIDE [Concomitant]
     Dates: start: 20120604
  3. FLUOCINONIDE [Concomitant]
     Dates: start: 20111005
  4. FISH OIL [Concomitant]
     Dates: start: 20120101
  5. INCIVEK [Suspect]
     Indication: HEPATITIS C
     Route: 048
     Dates: start: 20120710, end: 20120713
  6. PEGINTERFERON ALFA-2A [Concomitant]
     Indication: HEPATITIS C
     Route: 058
     Dates: start: 20120710
  7. RIBAVIRIN [Concomitant]
     Indication: HEPATITIS C
     Route: 048
     Dates: start: 20120710
  8. PRAVASTATIN SODIUM [Concomitant]
     Dates: start: 20101105
  9. METFORMIN HYDROCHLORIDE [Concomitant]
     Dates: start: 20110524

REACTIONS (3)
  - DRUG ERUPTION [None]
  - WHITE BLOOD CELL COUNT INCREASED [None]
  - PROCTALGIA [None]
